FAERS Safety Report 16453048 (Version 2)
Quarter: 2020Q1

REPORT INFORMATION
  Report Type: Report from Study
  Country: US (occurrence: US)
  Receive Date: 20190619
  Receipt Date: 20200212
  Transmission Date: 20200409
  Serious: No
  Sender: FDA-Public Use
  Company Number: US-SA-2019SA161418

PATIENT
  Age: 69 Year
  Sex: Male

DRUGS (2)
  1. MELOXICAM. [Concomitant]
     Active Substance: MELOXICAM
  2. SARILUMAB [Suspect]
     Active Substance: SARILUMAB
     Indication: RHEUMATOID ARTHRITIS
     Dosage: 200 MG, QOW
     Route: 058
     Dates: start: 201904, end: 201910

REACTIONS (4)
  - Intentional dose omission [Unknown]
  - Therapeutic response decreased [Unknown]
  - Injection site urticaria [Unknown]
  - Injection site erythema [Unknown]

NARRATIVE: CASE EVENT DATE: 20190526
